FAERS Safety Report 7611766-1 (Version None)
Quarter: 2011Q3

REPORT INFORMATION
  Report Type: 
  Country: None (occurrence: None)
  Receive Date: 20110715
  Receipt Date: 20110712
  Transmission Date: 20111222
  Serious: Yes (Disabling, Other)
  Sender: FDA-Public Use
  Company Number: GB-PFIZER INC-2011081258

PATIENT
  Age: 67 Year
  Sex: Female
  Weight: 51 kg

DRUGS (2)
  1. LYRICA [Suspect]
     Indication: BACK PAIN
     Dosage: 150 MG, 2X/DAY
     Route: 048
     Dates: start: 20100819, end: 20110415
  2. ACETAMINOPHEN AND CODEINE PHOSPHATE [Concomitant]
     Indication: BACK PAIN
     Dosage: 30/500(UNITS NOT PROVIDED),4 TIMES DAILY,INTERMITTENTLY
     Route: 048
     Dates: start: 20101019

REACTIONS (3)
  - DEAFNESS NEUROSENSORY [None]
  - GAIT DISTURBANCE [None]
  - DYSPHONIA [None]
